FAERS Safety Report 4383546-4 (Version None)
Quarter: 2004Q2

REPORT INFORMATION
  Report Type: 
  Country: None (occurrence: None)
  Receive Date: 20040623
  Receipt Date: 20040621
  Transmission Date: 20050107
  Serious: Yes (Death, Hospitalization, Other)
  Sender: FDA-Public Use
  Company Number: US-BRISTOL-MYERS SQUIBB COMPANY-12621330

PATIENT
  Age: 71 Year
  Sex: Female
  Weight: 63 kg

DRUGS (9)
  1. CYTOXAN [Suspect]
     Indication: BREAST CANCER
     Route: 048
     Dates: start: 20031103, end: 20031110
  2. CYTOXAN [Suspect]
     Route: 042
     Dates: start: 20031110, end: 20031110
  3. METHOTREXATE [Concomitant]
     Indication: BREAST CANCER
     Dates: start: 20031110, end: 20031110
  4. FLUOROURACIL [Concomitant]
     Indication: BREAST CANCER
     Dates: start: 20031110, end: 20031110
  5. AVANDIA [Concomitant]
  6. ATENOLOL [Concomitant]
  7. ESTRATEST [Concomitant]
  8. LIPITOR [Concomitant]
  9. DOXAZOSIN [Concomitant]

REACTIONS (14)
  - ABDOMINAL PAIN [None]
  - DIARRHOEA [None]
  - GASTROINTESTINAL HAEMORRHAGE [None]
  - GASTROINTESTINAL NECROSIS [None]
  - HAEMORRHAGE [None]
  - MUCORMYCOSIS [None]
  - MULTI-ORGAN FAILURE [None]
  - OVERDOSE [None]
  - PNEUMONIA [None]
  - RED BLOOD CELL COUNT DECREASED [None]
  - STOMATITIS [None]
  - VOMITING [None]
  - WHITE BLOOD CELL COUNT DECREASED [None]
  - WOUND INFECTION [None]
